FAERS Safety Report 8037036-8 (Version None)
Quarter: 2012Q1

REPORT INFORMATION
  Report Type: 
  Country: None (occurrence: None)
  Receive Date: 20120111
  Receipt Date: 20111230
  Transmission Date: 20120608
  Serious: Yes (Hospitalization)
  Sender: FDA-Public Use
  Company Number: NL-MEDIMMUNE-MEDI-0014383

PATIENT
  Sex: Male
  Weight: 5.16 kg

DRUGS (2)
  1. SYNAGIS [Suspect]
     Indication: BRONCHOPULMONARY DYSPLASIA
     Route: 030
  2. PROPRANOLOL [Concomitant]

REACTIONS (4)
  - BODY TEMPERATURE INCREASED [None]
  - PNEUMONIA [None]
  - DYSPNOEA [None]
  - RHINORRHOEA [None]
